FAERS Safety Report 16310540 (Version 1)
Quarter: 2019Q2

REPORT INFORMATION
  Report Type: Spontaneous
  Country: AT (occurrence: AT)
  Receive Date: 20190514
  Receipt Date: 20190514
  Transmission Date: 20190711
  Serious: Yes (Disabling)
  Sender: FDA-Public Use
  Company Number: AT-JNJFOC-20190511370

PATIENT
  Age: 30 Year
  Sex: Male

DRUGS (3)
  1. TREVICTA [Suspect]
     Active Substance: PALIPERIDONE PALMITATE
     Indication: SCHIZOPHRENIA
     Route: 030
     Dates: start: 2018, end: 2018
  2. TIAPRID [Concomitant]
     Active Substance: TIAPRIDE HYDROCHLORIDE
     Route: 065
  3. CANNABIDIOL [Concomitant]
     Active Substance: CANNABIDIOL
     Route: 065

REACTIONS (3)
  - Dystonia [Recovered/Resolved with Sequelae]
  - Treatment noncompliance [Unknown]
  - Lordosis [Recovering/Resolving]
